FAERS Safety Report 8191546-1 (Version None)
Quarter: 2012Q1

REPORT INFORMATION
  Report Type: 
  Country: None (occurrence: None)
  Receive Date: 20120307
  Receipt Date: 20120305
  Transmission Date: 20120608
  Serious: Yes (Hospitalization, Other)
  Sender: FDA-Public Use
  Company Number: US-ABBOTT-12P-163-0892714-00

PATIENT
  Sex: Female

DRUGS (2)
  1. KEPPRA [Concomitant]
     Indication: EPILEPSY
  2. DEPAKOTE [Suspect]
     Indication: CONVULSION
     Dates: end: 20081201

REACTIONS (1)
  - ABORTION SPONTANEOUS [None]
